FAERS Safety Report 4465241-6 (Version None)
Quarter: 2004Q3

REPORT INFORMATION
  Report Type: 
  Country: None (occurrence: None)
  Receive Date: 20040930
  Receipt Date: 20040930
  Transmission Date: 20050211
  Serious: Yes (Other)
  Sender: FDA-Public Use
  Company Number: None

PATIENT
  Age: 10 Year
  Sex: Female
  Weight: 43.9989 kg

DRUGS (9)
  1. PAXIL [Suspect]
     Indication: ANXIETY
     Dosage: 10 MG PO
     Route: 048
     Dates: start: 20030901, end: 20040301
  2. PAXIL [Suspect]
     Indication: DEPRESSION
     Dosage: 10 MG PO
     Route: 048
     Dates: start: 20030901, end: 20040301
  3. SEREVENT [Concomitant]
  4. SINGULAIR [Concomitant]
  5. ALBUTEROL [Concomitant]
  6. NASACORT [Concomitant]
  7. FLOVENT [Concomitant]
  8. ADDERALL XR 20 [Concomitant]
  9. IMITREX [Concomitant]

REACTIONS (3)
  - ANGER [None]
  - PHARMACEUTICAL PRODUCT COMPLAINT [None]
  - PSYCHOTIC DISORDER [None]
